FAERS Safety Report 6992865-4 (Version None)
Quarter: 2010Q3

REPORT INFORMATION
  Report Type: 
  Country: None (occurrence: None)
  Receive Date: 20100917
  Receipt Date: 20100907
  Transmission Date: 20110219
  Serious: Yes (Hospitalization)
  Sender: FDA-Public Use
  Company Number: B0673348A

PATIENT
  Age: 86 Year
  Sex: Female

DRUGS (3)
  1. CLAVENTIN [Suspect]
     Route: 042
     Dates: start: 20100710, end: 20100721
  2. VANCOMYCIN HCL [Suspect]
     Route: 042
     Dates: start: 20100710, end: 20100721
  3. TAVANIC [Suspect]
     Route: 042
     Dates: start: 20100710, end: 20100721

REACTIONS (18)
  - ACUTE GENERALISED EXANTHEMATOUS PUSTULOSIS [None]
  - BURNING SENSATION [None]
  - CHEILITIS [None]
  - CHOLESTASIS [None]
  - CONFUSIONAL STATE [None]
  - DRUG RASH WITH EOSINOPHILIA AND SYSTEMIC SYMPTOMS [None]
  - EOSINOPHILIA [None]
  - ERYTHEMA [None]
  - EYELID OEDEMA [None]
  - GENERAL PHYSICAL HEALTH DETERIORATION [None]
  - HEPATOCELLULAR INJURY [None]
  - INFLAMMATION [None]
  - OEDEMA [None]
  - PYREXIA [None]
  - RASH MACULO-PAPULAR [None]
  - RASH PUSTULAR [None]
  - SKIN DISORDER [None]
  - TOXIC SKIN ERUPTION [None]
